FAERS Safety Report 8615340-X (Version None)
Quarter: 2012Q3

REPORT INFORMATION
  Report Type: 
  Country: None (occurrence: None)
  Receive Date: 20120823
  Receipt Date: 20120730
  Transmission Date: 20120928
  Serious: No
  Sender: FDA-Public Use
  Company Number: US-009507513-1208USA000037

PATIENT

DRUGS (1)
  1. IMPLANON [Suspect]
     Dosage: UNK
     Dates: start: 20110314

REACTIONS (5)
  - GALLBLADDER OPERATION [None]
  - WEIGHT INCREASED [None]
  - AMENORRHOEA [None]
  - MENTAL STATUS CHANGES [None]
  - ABDOMINAL PAIN [None]
